FAERS Safety Report 10419767 (Version 2)
Quarter: 2015Q2

REPORT INFORMATION
  Report Type: Spontaneous
  Country: IT (occurrence: IT)
  Receive Date: 20140829
  Receipt Date: 20150513
  Transmission Date: 20150821
  Serious: Yes (Hospitalization)
  Sender: FDA-Public Use
  Company Number: IT-LUNDBECK-DKLU1103070

PATIENT
  Age: 58 Year
  Sex: Male

DRUGS (7)
  1. LISINOPRIL. [Suspect]
     Active Substance: LISINOPRIL
     Indication: INTENTIONAL SELF-INJURY
     Route: 048
     Dates: start: 20130921, end: 20130921
  2. KEPPRA [Suspect]
     Active Substance: LEVETIRACETAM
     Indication: INTENTIONAL SELF-INJURY
     Route: 048
     Dates: start: 20130921, end: 20130921
  3. FRISIUM [Suspect]
     Active Substance: CLOBAZAM
     Indication: INTENTIONAL SELF-INJURY
     Route: 048
     Dates: start: 20130921, end: 20130921
  4. FINASTERIDE. [Suspect]
     Active Substance: FINASTERIDE
     Indication: INTENTIONAL SELF-INJURY
     Route: 048
     Dates: start: 20130921, end: 20130921
  5. VENLAFAXINE HYDROCHLORIDE. [Suspect]
     Active Substance: VENLAFAXINE HYDROCHLORIDE
     Indication: INTENTIONAL SELF-INJURY
     Route: 048
     Dates: start: 20130921, end: 20130921
  6. BISOPROLOL HEMIFUMARATE [Suspect]
     Active Substance: BISOPROLOL FUMARATE
     Indication: INTENTIONAL SELF-INJURY
     Route: 048
     Dates: start: 20130921, end: 20130921
  7. AGGRENOX [Suspect]
     Active Substance: ASPIRIN\DIPYRIDAMOLE
     Indication: INTENTIONAL SELF-INJURY
     Route: 048
     Dates: start: 20130921, end: 20130921

REACTIONS (3)
  - Vomiting [Recovering/Resolving]
  - Drug abuse [Recovering/Resolving]
  - Loss of consciousness [Recovering/Resolving]

NARRATIVE: CASE EVENT DATE: 20130921
